FAERS Safety Report 14008575 (Version 1)
Quarter: 2017Q3

REPORT INFORMATION
  Report Type: Spontaneous
  Country: BE (occurrence: BE)
  Receive Date: 20170925
  Receipt Date: 20170925
  Transmission Date: 20171128
  Serious: Yes (Hospitalization)
  Sender: FDA-Public Use
  Company Number: BE-ELI_LILLY_AND_COMPANY-BE201709006583

PATIENT
  Age: 35 Year
  Sex: Male

DRUGS (1)
  1. ZYPADHERA [Suspect]
     Active Substance: OLANZAPINE PAMOATE
     Indication: PRODUCT USED FOR UNKNOWN INDICATION
     Dosage: 405 MG, MONTHLY (1/M)
     Route: 042

REACTIONS (7)
  - Blood pressure increased [Unknown]
  - Somnolence [Unknown]
  - Post-injection delirium sedation syndrome [Unknown]
  - Feeling drunk [Unknown]
  - Depressed mood [Recovering/Resolving]
  - Incontinence [Unknown]
  - Confusional state [Unknown]

NARRATIVE: CASE EVENT DATE: 20170822
